FAERS Safety Report 8877424 (Version 1)
Quarter: 2012Q4

REPORT INFORMATION
  Report Type: 
  Country: US (occurrence: US)
  Receive Date: 20121024
  Receipt Date: 20121024
  Transmission Date: 20130627
  Serious: No
  Sender: FDA-Public Use
  Company Number: US-PFIZER INC-2012260645

PATIENT
  Age: 42 Year
  Sex: Female
  Weight: 67.57 kg

DRUGS (1)
  1. LEVOXYL [Suspect]
     Indication: AUTOIMMUNE THYROIDITIS
     Dosage: 150 ug, daily
     Route: 048
     Dates: start: 2003

REACTIONS (13)
  - Rash [Recovered/Resolved]
  - Pruritus [Recovered/Resolved]
  - Dry skin [Recovered/Resolved]
  - Joint swelling [Recovered/Resolved]
  - Oedema peripheral [Recovered/Resolved]
  - Face oedema [Recovered/Resolved]
  - Malaise [Recovered/Resolved]
  - Muscular weakness [Recovered/Resolved]
  - Feeling cold [Recovered/Resolved]
  - Myalgia [Recovered/Resolved]
  - Dysphonia [Recovered/Resolved]
  - Alopecia [Recovered/Resolved]
  - Abdominal distension [Recovered/Resolved]
